FAERS Safety Report 14603892 (Version 3)
Quarter: 2025Q2

REPORT INFORMATION
  Report Type: Spontaneous
  Country: US (occurrence: US)
  Receive Date: 20180306
  Receipt Date: 20250507
  Transmission Date: 20250717
  Serious: Yes (Other)
  Sender: CHIESI
  Company Number: US-AEGERION PHARMACEUTICAL, INC-AEGR003574

PATIENT
  Sex: Female
  Weight: 56.689 kg

DRUGS (6)
  1. MYALEPT [Suspect]
     Active Substance: METRELEPTIN
     Indication: Lipodystrophy acquired
     Dosage: 7.5 MILLIGRAM, QD
     Route: 058
     Dates: start: 201701
  2. MYALEPT [Suspect]
     Active Substance: METRELEPTIN
     Dosage: 5 MILLIGRAM, QD
     Route: 058
  3. HUMULIN R [Concomitant]
     Active Substance: INSULIN HUMAN
     Indication: Product used for unknown indication
  4. CLONIDINE [Concomitant]
     Active Substance: CLONIDINE
     Indication: Product used for unknown indication
  5. SYNTHROID [Concomitant]
     Active Substance: LEVOTHYROXINE SODIUM
     Indication: Product used for unknown indication
  6. ENALAPRIL [Concomitant]
     Active Substance: ENALAPRIL
     Indication: Product used for unknown indication

REACTIONS (3)
  - Diabetes mellitus inadequate control [Unknown]
  - Product dose omission issue [Unknown]
  - Blood glucose increased [Recovering/Resolving]
